FAERS Safety Report 13528653 (Version 1)
Quarter: 2017Q2

REPORT INFORMATION
  Report Type: Spontaneous
  Country: US (occurrence: US)
  Receive Date: 20170509
  Receipt Date: 20170509
  Transmission Date: 20170830
  Serious: Yes (Other)
  Sender: FDA-Public Use
  Company Number: US-BAYER-2017-080240

PATIENT
  Sex: Female

DRUGS (1)
  1. BAYER WOMENS [Suspect]
     Active Substance: ASPIRIN\CALCIUM CARBONATE
     Indication: PRE-ECLAMPSIA
     Dosage: 1 DF, UNK
     Route: 048

REACTIONS (3)
  - Foetal hypokinesia [Unknown]
  - Off label use [Unknown]
  - Maternal exposure during pregnancy [Unknown]
